FAERS Safety Report 6993673-0 (Version None)
Quarter: 2010Q3

REPORT INFORMATION
  Report Type: 
  Country: None (occurrence: None)
  Receive Date: 20100917
  Receipt Date: 20070801
  Transmission Date: 20110219
  Serious: Yes (Hospitalization, Other)
  Sender: FDA-Public Use
  Company Number: US-ASTRAZENECA-2006UW22435

PATIENT
  Age: 14954 Day
  Sex: Female
  Weight: 79.4 kg

DRUGS (22)
  1. SEROQUEL [Suspect]
     Dosage: 75MG -100MG
     Route: 048
     Dates: start: 20010507
  2. SEROQUEL [Suspect]
     Route: 048
  3. SEROQUEL [Suspect]
     Route: 048
  4. SEROQUEL [Suspect]
     Route: 048
  5. SEROQUEL [Suspect]
     Route: 048
  6. ALPRAZOLAM [Concomitant]
     Dates: start: 20060508
  7. TEMAZEPAM [Concomitant]
     Dates: start: 20031015
  8. PRILOSEC [Concomitant]
     Dates: start: 20001027
  9. WELLBUTRIN SR [Concomitant]
     Dates: start: 20010316
  10. PAXIL [Concomitant]
     Dates: start: 20020503
  11. RISPERDAL [Concomitant]
     Dosage: 0.5MG, EVERY MORNING AND AT NIGHT
     Route: 048
     Dates: start: 20001211
  12. METOPROLOL [Concomitant]
     Dates: start: 20000824
  13. ASPIRIN [Concomitant]
     Dosage: 81MG TO 325MG
     Route: 048
     Dates: start: 20030509
  14. PROTONIX [Concomitant]
     Dates: start: 20000927
  15. CLONIDINE [Concomitant]
     Route: 048
     Dates: start: 20040227
  16. LISINOPRIL [Concomitant]
     Dates: start: 20040605
  17. ZOCOR [Concomitant]
     Route: 048
     Dates: start: 20050621
  18. VALIUM [Concomitant]
     Dates: start: 20060409
  19. PLAVIX [Concomitant]
     Route: 048
     Dates: start: 20050621
  20. NITROSTAT [Concomitant]
     Dosage: 0.4MG AS NEEDED
     Route: 060
     Dates: start: 20050101
  21. NORVASC [Concomitant]
     Dates: start: 20000824
  22. LORAZEPAM [Concomitant]
     Route: 048
     Dates: start: 20031015

REACTIONS (8)
  - DIABETES MELLITUS [None]
  - DIABETES MELLITUS INADEQUATE CONTROL [None]
  - DIABETIC COMA [None]
  - DIABETIC KETOACIDOSIS [None]
  - INSULIN-REQUIRING TYPE 2 DIABETES MELLITUS [None]
  - KETOACIDOSIS [None]
  - TYPE 1 DIABETES MELLITUS [None]
  - TYPE 2 DIABETES MELLITUS [None]
